FAERS Safety Report 13884674 (Version 1)
Quarter: 2017Q3

REPORT INFORMATION
  Report Type: Spontaneous
  Country: US (occurrence: US)
  Receive Date: 20170821
  Receipt Date: 20170821
  Transmission Date: 20171127
  Serious: Yes (Other)
  Sender: FDA-Public Use
  Company Number: US-APOTEX-2017AP016891

PATIENT
  Sex: Male

DRUGS (1)
  1. MYCOPHENOLIC ACID DELAYED-RELEASED TABLETS [Suspect]
     Active Substance: MYCOPHENOLIC ACID
     Indication: SCLERODERMA
     Dosage: 360 MG, BID
     Route: 065

REACTIONS (1)
  - Condition aggravated [Unknown]
